FAERS Safety Report 8162076-8 (Version None)
Quarter: 2012Q1

REPORT INFORMATION
  Report Type: 
  Country: None (occurrence: None)
  Receive Date: 20120224
  Receipt Date: 20110627
  Transmission Date: 20120608
  Serious: No
  Sender: FDA-Public Use
  Company Number: US-BRISTOL-MYERS SQUIBB COMPANY-15856909

PATIENT
  Age: 74 Year
  Sex: Female

DRUGS (1)
  1. GLUCOPHAGE [Suspect]
     Indication: TYPE 2 DIABETES MELLITUS
     Dosage: TWO 500MG TABLETS IN THE MORNING AND TWO 500MG TABLETS IN THE EVENING, ON THE 8TH OF JUNE.

REACTIONS (3)
  - BLOOD GLUCOSE ABNORMAL [None]
  - ASTHENIA [None]
  - FATIGUE [None]
